FAERS Safety Report 8313029-8 (Version None)
Quarter: 2012Q2

REPORT INFORMATION
  Report Type: 
  Country: None (occurrence: None)
  Receive Date: 20120424
  Receipt Date: 20120411
  Transmission Date: 20120825
  Serious: Yes (Hospitalization)
  Sender: FDA-Public Use
  Company Number: 2012MA004941

PATIENT
  Age: 76 Year
  Sex: Female

DRUGS (8)
  1. RAMIPRIL [Suspect]
     Dosage: 2.5 MG;QAM;PO
     Route: 048
     Dates: end: 20120305
  2. LANSOPRAZOLE [Concomitant]
  3. FLUTICASONE PROPIONATE/SALMETEROL [Concomitant]
  4. ASPIRIN [Concomitant]
  5. SIMVASTATIN [Suspect]
     Dosage: 20 MG;HS;PO
     Route: 048
     Dates: end: 20120305
  6. FUROSEMIDE [Concomitant]
  7. SPIRIVA [Concomitant]
  8. CIPROFLOXACIN [Suspect]
     Indication: LIVER ABSCESS
     Dosage: 750 MG;BID;PO
     Route: 048
     Dates: start: 20120216, end: 20120305

REACTIONS (2)
  - RENAL FAILURE ACUTE [None]
  - DEHYDRATION [None]
